FAERS Safety Report 22266329 (Version 1)
Quarter: 2023Q2

REPORT INFORMATION
  Report Type: Spontaneous
  Country: DE (occurrence: DE)
  Receive Date: 20230428
  Receipt Date: 20230428
  Transmission Date: 20230721
  Serious: Yes (Other)
  Sender: FDA-Public Use
  Company Number: DE-TEVA-2023-DE-2880224

PATIENT
  Age: 67 Year
  Sex: Female

DRUGS (4)
  1. METOPROLOL [Suspect]
     Active Substance: METOPROLOL
     Indication: Arrhythmia
     Dosage: 50 MILLIGRAM DAILY;
     Route: 065
     Dates: start: 20221024
  2. METOPROLOL [Suspect]
     Active Substance: METOPROLOL
     Dosage: FORM STRENGTH AND UNIT DOSE: 50MILLIGRAM, HALF A TABLET
     Route: 065
     Dates: start: 20221024
  3. CHLORHEXAMED [Concomitant]
     Indication: Stomatitis
  4. CEFUROXIME AXETIL [Concomitant]
     Active Substance: CEFUROXIME AXETIL
     Indication: Pneumonia
     Dosage: FORM STRENGTH: 500MILLIGRAM

REACTIONS (5)
  - Somnolence [Not Recovered/Not Resolved]
  - Fatigue [Not Recovered/Not Resolved]
  - Cognitive disorder [Not Recovered/Not Resolved]
  - Slow response to stimuli [Not Recovered/Not Resolved]
  - Loss of personal independence in daily activities [Not Recovered/Not Resolved]
